FAERS Safety Report 17860693 (Version 3)
Quarter: 2020Q4

REPORT INFORMATION
  Report Type: Spontaneous
  Country: US (occurrence: US)
  Receive Date: 20200604
  Receipt Date: 20201207
  Transmission Date: 20210113
  Serious: Yes (Other)
  Sender: FDA-Public Use
  Company Number: US-SA-2020SA141907

PATIENT

DRUGS (1)
  1. DUPIXENT [Suspect]
     Active Substance: DUPILUMAB
     Indication: DERMATITIS ATOPIC
     Dosage: 300 MG, QOW
     Route: 058
     Dates: start: 202002, end: 2020

REACTIONS (8)
  - Urinary tract infection [Unknown]
  - Stoma site haemorrhage [Unknown]
  - Dermatitis atopic [Unknown]
  - Dry skin [Unknown]
  - Gout [Unknown]
  - Urostomy [Unknown]
  - Arthralgia [Unknown]
  - Stoma creation [Unknown]

NARRATIVE: CASE EVENT DATE: 2020
